FAERS Safety Report 7564627-0 (Version None)
Quarter: 2011Q2

REPORT INFORMATION
  Report Type: 
  Country: None (occurrence: None)
  Receive Date: 20110622
  Receipt Date: 20100809
  Transmission Date: 20111010
  Serious: Yes (Other)
  Sender: FDA-Public Use
  Company Number: US-MYLANLABS-2010S1012744

PATIENT
  Age: 45 Year
  Sex: Male
  Weight: 68.04 kg

DRUGS (5)
  1. ARTANE [Concomitant]
     Route: 048
  2. PROLIXIN /00000602/ [Concomitant]
     Route: 048
  3. BENADRYL [Concomitant]
     Route: 048
  4. CLOZAPINE [Suspect]
     Indication: PSYCHOTIC DISORDER
     Route: 048
  5. DEPAKOTE [Concomitant]
     Route: 048

REACTIONS (1)
  - GRANULOCYTOPENIA [None]
